FAERS Safety Report 12092068 (Version 8)
Quarter: 2018Q4

REPORT INFORMATION
  Report Type: Report from Study
  Country: US (occurrence: US)
  Receive Date: 20160219
  Receipt Date: 20181019
  Transmission Date: 20190204
  Serious: Yes (Other)
  Sender: FDA-Public Use
  Company Number: PHHY2016US019727

PATIENT
  Age: 21 Year
  Sex: Male

DRUGS (1)
  1. GILENYA [Suspect]
     Active Substance: FINGOLIMOD HYDROCHLORIDE
     Indication: MULTIPLE SCLEROSIS
     Dosage: UNK, QD
     Route: 048

REACTIONS (11)
  - Pollakiuria [Recovered/Resolved]
  - Paraesthesia [Not Recovered/Not Resolved]
  - Lymphopenia [Recovered/Resolved]
  - Fatigue [Not Recovered/Not Resolved]
  - Vitamin D deficiency [Not Recovered/Not Resolved]
  - Central nervous system lesion [Not Recovered/Not Resolved]
  - White blood cell count decreased [Unknown]
  - Multiple sclerosis relapse [Unknown]
  - Alanine aminotransferase decreased [Unknown]
  - Neuropathy peripheral [Not Recovered/Not Resolved]
  - Micturition urgency [Recovered/Resolved]

NARRATIVE: CASE EVENT DATE: 20150110
